FAERS Safety Report 9654620 (Version 1)
Quarter: 2013Q4

REPORT INFORMATION
  Report Type: Spontaneous
  Country: US (occurrence: US)
  Receive Date: 20131029
  Receipt Date: 20131029
  Transmission Date: 20140711
  Serious: No
  Sender: FDA-Public Use
  Company Number: US-BIOGENIDEC-2013BI085465

PATIENT
  Sex: Female

DRUGS (6)
  1. TECFIDERA [Suspect]
     Indication: MULTIPLE SCLEROSIS
     Route: 048
     Dates: start: 20130627
  2. BUSPIRONE HCL [Concomitant]
  3. CITALOPRAM HYDROBROMIDE [Concomitant]
  4. COLACE [Concomitant]
  5. CYCLOBENZAPRINE HCL [Concomitant]
  6. DILTIAZEM HCL ER [Concomitant]

REACTIONS (1)
  - Diarrhoea [Unknown]
